FAERS Safety Report 4462668-3 (Version None)
Quarter: 2004Q3

REPORT INFORMATION
  Report Type: 
  Country: None (occurrence: None)
  Receive Date: 20040927
  Receipt Date: 20040927
  Transmission Date: 20050211
  Serious: Yes (Other)
  Sender: FDA-Public Use
  Company Number: None

PATIENT
  Age: 56 Year
  Sex: Male
  Weight: 88.4514 kg

DRUGS (1)
  1. KAOPECTATE NORMAL PFIZER [Suspect]
     Indication: GASTROINTESTINAL DISORDER
     Dosage: 1 TABLES MOUTH ORAL
     Route: 048

REACTIONS (4)
  - ASTHENIA [None]
  - HEADACHE [None]
  - MEDICATION ERROR [None]
  - STUPOR [None]
